FAERS Safety Report 25240159 (Version 1)
Quarter: 2025Q2

REPORT INFORMATION
  Report Type: Spontaneous
  Country: US (occurrence: US)
  Receive Date: 20250425
  Receipt Date: 20250425
  Transmission Date: 20250717
  Serious: Yes (Other)
  Sender: INTERCHEM
  Company Number: US-HQ SPECIALTY-US-2025INT000031

PATIENT
  Age: 71 Year
  Sex: Female

DRUGS (1)
  1. CISPLATIN [Suspect]
     Active Substance: CISPLATIN
     Indication: Chemotherapy
     Route: 065

REACTIONS (4)
  - Clostridium difficile infection [Unknown]
  - Dizziness [Unknown]
  - Anxiety [Unknown]
  - Dyspnoea [Unknown]
